FAERS Safety Report 21678146 (Version 1)
Quarter: 2022Q4

REPORT INFORMATION
  Report Type: Spontaneous
  Country: IT (occurrence: IT)
  Receive Date: 20221203
  Receipt Date: 20221203
  Transmission Date: 20230112
  Serious: Yes (Other)
  Sender: FDA-Public Use
  Company Number: None

PATIENT
  Age: 74 Year
  Sex: Male
  Weight: 80 kg

DRUGS (3)
  1. ZOLEDRONIC ACID [Suspect]
     Active Substance: ZOLEDRONIC ACID
     Indication: Metastases to bone
     Dosage: 4MG, UNIT DOSE :  4 MG, DURATION : 186 DAYS
     Route: 065
     Dates: start: 20220501, end: 20221103
  2. APALUTAMIDE [Suspect]
     Active Substance: APALUTAMIDE
     Indication: Prostate cancer
     Dosage: 960 MILLIGRAM DAILY; 4 240MG TABS PER DAY
     Dates: start: 20220501
  3. DECAPEPTYL (ACETATE) [Suspect]
     Active Substance: TRIPTORELIN ACETATE
     Indication: Prostate cancer
     Dosage: 3.75 MG ONCE A MONTH,DURATION : 186 DAYS
     Dates: start: 20220501, end: 20221103

REACTIONS (5)
  - Leukopenia [Recovering/Resolving]
  - Skin papilloma [Recovering/Resolving]
  - Anaemia [Recovering/Resolving]
  - Blood creatinine increased [Recovering/Resolving]
  - Peripheral swelling [Recovering/Resolving]

NARRATIVE: CASE EVENT DATE: 20220501
